FAERS Safety Report 18224161 (Version 1)
Quarter: 2020Q3

REPORT INFORMATION
  Report Type: Spontaneous
  Country: US (occurrence: US)
  Receive Date: 20200902
  Receipt Date: 20200902
  Transmission Date: 20201103
  Serious: Yes (Death)
  Sender: FDA-Public Use
  Company Number: US-PFIZER INC-2020339554

PATIENT
  Age: 77 Year
  Sex: Female

DRUGS (1)
  1. VYNDAQEL [Suspect]
     Active Substance: TAFAMIDIS MEGLUMINE
     Dosage: 20 MG
     Dates: start: 20200724, end: 20200831

REACTIONS (1)
  - Death [Fatal]

NARRATIVE: CASE EVENT DATE: 2020
